FAERS Safety Report 8189618-0 (Version None)
Quarter: 2012Q1

REPORT INFORMATION
  Report Type: 
  Country: None (occurrence: None)
  Receive Date: 20120305
  Receipt Date: 20120223
  Transmission Date: 20120608
  Serious: Yes (Death, Hospitalization, Other)
  Sender: FDA-Public Use
  Company Number: 2012IT0082

PATIENT
  Age: 11 Year

DRUGS (1)
  1. ORFADIN [Suspect]
     Indication: TYROSINAEMIA

REACTIONS (4)
  - METASTASES TO MUSCLE [None]
  - LIVER TRANSPLANT [None]
  - HEPATIC NEOPLASM MALIGNANT [None]
  - METASTASES TO SKIN [None]
